FAERS Safety Report 7346541-9 (Version None)
Quarter: 2011Q1

REPORT INFORMATION
  Report Type: 
  Country: None (occurrence: None)
  Receive Date: 20110311
  Receipt Date: 20110301
  Transmission Date: 20110831
  Serious: Yes (Other)
  Sender: FDA-Public Use
  Company Number: JP-JNJFOC-20110208040

PATIENT
  Age: 65 Year
  Sex: Male

DRUGS (3)
  1. DUROTEP MT [Suspect]
     Indication: CANCER PAIN
     Dosage: 2 PATCHES OF 25UG/HR
     Route: 062
  2. OXINORM [Concomitant]
     Route: 048
  3. OXYCONTIN [Concomitant]
     Route: 048

REACTIONS (3)
  - RESPIRATORY DEPRESSION [None]
  - DRUG PRESCRIBING ERROR [None]
  - INAPPROPRIATE SCHEDULE OF DRUG ADMINISTRATION [None]
